FAERS Safety Report 19746189 (Version 1)
Quarter: 2021Q3

REPORT INFORMATION
  Report Type: Spontaneous
  Country: US (occurrence: US)
  Receive Date: 20210825
  Receipt Date: 20210825
  Transmission Date: 20211014
  Serious: Yes (Other)
  Sender: FDA-Public Use
  Company Number: US-MYLANLABS-2021M1048365

PATIENT
  Sex: Male

DRUGS (1)
  1. LANSOPRAZOLE DELAYED?RELEASE CAPSULES USP [Suspect]
     Active Substance: LANSOPRAZOLE
     Indication: DYSPEPSIA
     Dosage: 1 CAPSULE DAILY FOR 70 CONSECUTIVE DAYS
     Route: 048

REACTIONS (1)
  - Arrhythmia [Recovered/Resolved]
